FAERS Safety Report 6809439-8 (Version None)
Quarter: 2010Q2

REPORT INFORMATION
  Report Type: 
  Country: None (occurrence: None)
  Receive Date: 20100625
  Receipt Date: 20100607
  Transmission Date: 20101027
  Serious: Yes (Other)
  Sender: FDA-Public Use
  Company Number: TRP_06962_2010

PATIENT
  Sex: Male
  Weight: 113.3993 kg

DRUGS (2)
  1. INFERGEN [Suspect]
     Indication: HEPATITIS C
     Dosage: 15 UG QD SUBCUTANEOUS
     Route: 058
     Dates: start: 20100421
  2. RIBAVIRIN [Suspect]
     Indication: HEPATITIS C
     Dosage: 600 UG BID ORAL
     Route: 048
     Dates: start: 20100421

REACTIONS (10)
  - BONE PAIN [None]
  - DECREASED APPETITE [None]
  - DEPRESSION [None]
  - FATIGUE [None]
  - HYPERHIDROSIS [None]
  - INFLUENZA LIKE ILLNESS [None]
  - LISTLESS [None]
  - NAUSEA [None]
  - PAIN OF SKIN [None]
  - TREMOR [None]
